FAERS Safety Report 7170675-5 (Version None)
Quarter: 2010Q4

REPORT INFORMATION
  Report Type: 
  Country: None (occurrence: None)
  Receive Date: 20101217
  Receipt Date: 20101206
  Transmission Date: 20110411
  Serious: Yes (Hospitalization)
  Sender: FDA-Public Use
  Company Number: IT-ELI_LILLY_AND_COMPANY-IT201012001312

PATIENT
  Sex: Female

DRUGS (2)
  1. XERISTAR [Suspect]
     Indication: DEPRESSION
     Dosage: 60 MG, DAILY (1/D)
     Route: 048
     Dates: start: 20101101, end: 20101201
  2. ATENOLOL AND CHLORTHALIDONE [Concomitant]

REACTIONS (7)
  - ASTHENIA [None]
  - BLOOD UREA INCREASED [None]
  - DIZZINESS [None]
  - GAIT DISTURBANCE [None]
  - HYPERHIDROSIS [None]
  - HYPOKALAEMIA [None]
  - TREMOR [None]
